FAERS Safety Report 23627765 (Version 1)
Quarter: 2024Q1

REPORT INFORMATION
  Report Type: Report from Study
  Country: GB (occurrence: GB)
  Receive Date: 20240313
  Receipt Date: 20240313
  Transmission Date: 20240410
  Serious: Yes (Hospitalization)
  Sender: FDA-Public Use
  Company Number: GB-UCBSA-2023024223

PATIENT
  Sex: Female

DRUGS (1)
  1. BIMEKIZUMAB [Suspect]
     Active Substance: BIMEKIZUMAB
     Indication: Psoriasis
     Dosage: 160MG PEN PK2 GB ONLY
     Route: 058
     Dates: start: 202301

REACTIONS (6)
  - Decreased immune responsiveness [Unknown]
  - Infection [Unknown]
  - Peripheral artery bypass [Unknown]
  - Nasopharyngitis [Unknown]
  - Dry skin [Unknown]
  - Skin fissures [Unknown]
